FAERS Safety Report 4599936-0 (Version None)
Quarter: 2005Q1

REPORT INFORMATION
  Report Type: 
  Country: None (occurrence: None)
  Receive Date: 20050307
  Receipt Date: 20050301
  Transmission Date: 20050727
  Serious: Yes (Life-Threatening, Hospitalization, Disabling)
  Sender: FDA-Public Use
  Company Number: IL-MERCK-0503ISR00007

PATIENT
  Age: 66 Year
  Sex: Female

DRUGS (3)
  1. VIOXX [Suspect]
     Indication: RHEUMATOID ARTHRITIS
     Route: 048
     Dates: start: 20000101, end: 20040930
  2. ASPIRIN [Concomitant]
     Indication: AORTIC ATHEROSCLEROSIS
     Route: 048
  3. ASPIRIN [Concomitant]
     Indication: ARTERIOSCLEROSIS
     Route: 048

REACTIONS (3)
  - ANEURYSM [None]
  - HYDROCEPHALUS [None]
  - SUBARACHNOID HAEMORRHAGE [None]
